FAERS Safety Report 14639030 (Version 1)
Quarter: 2018Q1

REPORT INFORMATION
  Report Type: Spontaneous
  Country: JP (occurrence: JP)
  Receive Date: 20180315
  Receipt Date: 20180315
  Transmission Date: 20180509
  Serious: Yes (Hospitalization, Other)
  Sender: FDA-Public Use
  Company Number: JP-ALEMBIC PHARMACUETICALS LIMITED-2018SCAL000152

PATIENT

DRUGS (3)
  1. LITHIUM CARBONATE. [Suspect]
     Active Substance: LITHIUM CARBONATE
     Indication: MOOD SWINGS
     Dosage: 600 MG, QD (TROUGH WAS AT 0.60 MEQ/L)
  2. RISPERIDONE. [Concomitant]
     Active Substance: RISPERIDONE
     Indication: PRODUCT USED FOR UNKNOWN INDICATION
     Dosage: UNK
  3. RISPERIDONE. [Concomitant]
     Active Substance: RISPERIDONE
     Dosage: REDUCED BY HALF

REACTIONS (9)
  - Parkinsonian gait [Recovering/Resolving]
  - Hypophagia [Recovering/Resolving]
  - Loss of consciousness [Recovering/Resolving]
  - Dysphagia [Recovering/Resolving]
  - Hypothyroidism [Recovering/Resolving]
  - Myxoedema coma [Recovering/Resolving]
  - Body temperature decreased [Recovering/Resolving]
  - Blood pressure decreased [Recovering/Resolving]
  - Gait disturbance [Recovering/Resolving]
